FAERS Safety Report 9022007 (Version 1)
Quarter: 2013Q1

REPORT INFORMATION
  Report Type: Spontaneous
  Country: US (occurrence: US)
  Receive Date: 20130118
  Receipt Date: 20130118
  Transmission Date: 20140127
  Serious: Yes (Death)
  Sender: FDA-Public Use
  Company Number: US-SHIONOGI, INC-2013000006

PATIENT
  Age: 11 Year
  Sex: Male

DRUGS (2)
  1. CLONIDINE [Suspect]
     Dosage: UNK
  2. CHARCOAL [Suspect]
     Dosage: UNK

REACTIONS (2)
  - Accidental exposure to product [Fatal]
  - Death [Fatal]
